FAERS Safety Report 9452502 (Version 1)
Quarter: 2013Q3

REPORT INFORMATION
  Report Type: Spontaneous
  Country: US (occurrence: US)
  Receive Date: 20130812
  Receipt Date: 20130812
  Transmission Date: 20140515
  Serious: No
  Sender: FDA-Public Use
  Company Number: US-PFIZER INC-2013230255

PATIENT
  Age: 49 Year
  Sex: Female
  Weight: 80.73 kg

DRUGS (5)
  1. LATANOPROST [Suspect]
     Indication: GLAUCOMA
     Dosage: 1 GTT, 1X/DAY (IN EACH EYE)
     Route: 047
     Dates: start: 201303, end: 2013
  2. LATANOPROST [Suspect]
     Dosage: 1 GTT, 1X/DAY (IN EACH EYE)
     Route: 047
     Dates: start: 2013
  3. LANTUS [Concomitant]
     Indication: DIABETES MELLITUS
     Dosage: 22 IU, 1X/DAY
  4. NOVOLIN R [Concomitant]
     Indication: DIABETES MELLITUS
     Dosage: 16 IU, 1X/DAY
  5. LEVOTHYROXINE [Concomitant]
     Indication: HYPOTHYROIDISM
     Dosage: 25 UG, 1X/DAY

REACTIONS (5)
  - Ocular hyperaemia [Not Recovered/Not Resolved]
  - Eye irritation [Not Recovered/Not Resolved]
  - Eye allergy [Not Recovered/Not Resolved]
  - Dry eye [Not Recovered/Not Resolved]
  - Eye disorder [Not Recovered/Not Resolved]
